FAERS Safety Report 5264851-6 (Version None)
Quarter: 2007Q1

REPORT INFORMATION
  Report Type: 
  Country: None (occurrence: None)
  Receive Date: 20070314
  Receipt Date: 20070309
  Transmission Date: 20070707
  Serious: Yes (Hospitalization)
  Sender: FDA-Public Use
  Company Number: AU-GLAXOSMITHKLINE-B0461444A

PATIENT
  Sex: Female

DRUGS (6)
  1. AVANDIA [Suspect]
     Dosage: 4MG TWICE PER DAY
     Route: 065
  2. DIABEX [Concomitant]
     Dosage: 1000MG THREE TIMES PER DAY
     Route: 065
  3. EPILIM [Concomitant]
     Dosage: 1000MG TWICE PER DAY
     Route: 065
  4. MINOCYCLINE HCL [Concomitant]
     Dosage: 100MG PER DAY
     Route: 065
  5. OXYCONTIN [Concomitant]
     Dosage: 40MG THREE TIMES PER DAY
     Route: 065
  6. ENDEP [Concomitant]
     Dosage: 20MG AT NIGHT
     Route: 065

REACTIONS (1)
  - PULMONARY OEDEMA [None]
